FAERS Safety Report 9994379 (Version 1)
Quarter: 2014Q1

REPORT INFORMATION
  Report Type: Spontaneous
  Country: NO (occurrence: NO)
  Receive Date: 20140311
  Receipt Date: 20140311
  Transmission Date: 20141002
  Serious: Yes (Other)
  Sender: FDA-Public Use
  Company Number: NO-AMGEN-NORSP2014015774

PATIENT
  Age: 66 Year
  Sex: Male

DRUGS (3)
  1. XGEVA [Suspect]
     Indication: PROSTATE CANCER METASTATIC
     Dosage: 120 MG, UNK
     Route: 065
     Dates: start: 20131224, end: 20131224
  2. XGEVA [Suspect]
     Indication: METASTASES TO BONE
  3. PROLIA [Suspect]
     Indication: PROSTATE CANCER METASTATIC
     Dosage: 60 MG, UNK
     Route: 065
     Dates: start: 20131115, end: 20131115

REACTIONS (1)
  - Hypocalcaemia [Not Recovered/Not Resolved]
